FAERS Safety Report 4562221-7 (Version None)
Quarter: 2005Q1

REPORT INFORMATION
  Report Type: 
  Country: None (occurrence: None)
  Receive Date: 20050124
  Receipt Date: 20050110
  Transmission Date: 20050727
  Serious: Yes (Disabling)
  Sender: FDA-Public Use
  Company Number: HQWYE489719FEB03

PATIENT
  Age: 35 Year
  Sex: Female

DRUGS (7)
  1. EFFEXOR XR [Suspect]
     Indication: DEPRESSION
     Dosage: SEE IMAGE
     Route: 048
     Dates: start: 20020801, end: 20020101
  2. EFFEXOR XR [Suspect]
     Indication: DEPRESSION
     Dosage: SEE IMAGE
     Route: 048
     Dates: start: 20020101, end: 20021101
  3. EFFEXOR XR [Suspect]
     Indication: DEPRESSION
     Dosage: SEE IMAGE
     Route: 048
     Dates: start: 20030208, end: 20030101
  4. EFFEXOR XR [Suspect]
     Indication: DEPRESSION
     Dosage: SEE IMAGE
     Route: 048
     Dates: start: 20021101, end: 20030207
  5. EFFEXOR [Suspect]
     Indication: DEPRESSION
     Dosage: ^75 MG OR 150MG DAILY^, ORAL
     Route: 048
     Dates: start: 19940101, end: 19950101
  6. KLONOPIN [Concomitant]
  7. ZYPREXA [Concomitant]

REACTIONS (6)
  - INTENTIONAL SELF-INJURY [None]
  - OVERDOSE [None]
  - SELF-INJURIOUS IDEATION [None]
  - STRESS [None]
  - SUICIDAL IDEATION [None]
  - SUICIDE ATTEMPT [None]
